FAERS Safety Report 8809321 (Version 1)
Quarter: 2012Q4

REPORT INFORMATION
  Report Type: 
  Country: NL (occurrence: NL)
  Receive Date: 20120926
  Receipt Date: 20120926
  Transmission Date: 20130627
  Serious: Yes (Hospitalization)
  Sender: FDA-Public Use
  Company Number: NL-PFIZER INC-2012232236

PATIENT
  Age: 53 Year
  Sex: Male
  Weight: 96 kg

DRUGS (7)
  1. GENOTROPIN [Suspect]
     Dosage: 0.6 mg, 7/wk
     Route: 058
     Dates: start: 20090227
  2. HYDROCORTISONE [Concomitant]
     Indication: BLOOD CORTICOTROPHIN DECREASED
     Dosage: UNK
     Dates: start: 20040212
  3. ANDROGEL [Concomitant]
     Indication: BLOOD LUTEINISING HORMONE DECREASED
     Dosage: UNK
     Dates: start: 20040608
  4. ANDROGEL [Concomitant]
     Indication: BLOOD FOLLICLE STIMULATING HORMONE DECREASED
  5. ANDROGEL [Concomitant]
     Indication: HYPOGONADISM MALE
  6. THYRAX [Concomitant]
     Indication: BLOOD THYROID STIMULATING HORMONE DECREASED
     Dosage: UNK
     Dates: start: 20040212
  7. THYRAX [Concomitant]
     Indication: PRIMARY HYPOTHYROIDISM

REACTIONS (1)
  - Gastrointestinal infection [Unknown]
